FAERS Safety Report 5721892-X (Version None)
Quarter: 2008Q2

REPORT INFORMATION
  Report Type: 
  Country: None (occurrence: None)
  Receive Date: 20080429
  Receipt Date: 20080421
  Transmission Date: 20081010
  Serious: Yes (Hospitalization, Other)
  Sender: FDA-Public Use
  Company Number: PFIZER INC-2008015740

PATIENT
  Sex: Female
  Weight: 70 kg

DRUGS (16)
  1. XALATAN [Suspect]
     Indication: BORDERLINE GLAUCOMA
  2. FUROSEMIDE [Concomitant]
  3. KLOR-CON [Concomitant]
  4. SYNTHROID [Concomitant]
  5. PROTONIX [Concomitant]
  6. ALBUTEROL [Concomitant]
  7. NASAL SALINE [Concomitant]
  8. FLUTICASONE [Concomitant]
  9. ADVAIR HFA [Concomitant]
  10. PENTOXIFYLLINE [Concomitant]
  11. ACETYLSALICYLIC ACID SRT [Concomitant]
  12. CARDIOVASCULAR SYSTEM DRUGS [Concomitant]
  13. PLAVIX [Concomitant]
  14. IMDUR [Concomitant]
  15. LOTENSIN [Concomitant]
  16. HYPOTEARS DDPF [Concomitant]

REACTIONS (6)
  - DIZZINESS [None]
  - HEART RATE DECREASED [None]
  - LOSS OF CONSCIOUSNESS [None]
  - PHARMACEUTICAL PRODUCT COMPLAINT [None]
  - PRURITUS [None]
  - VISUAL DISTURBANCE [None]
